FAERS Safety Report 17788240 (Version 2)
Quarter: 2020Q2

REPORT INFORMATION
  Report Type: Report from Study
  Country: US (occurrence: US)
  Receive Date: 20200514
  Receipt Date: 20200522
  Transmission Date: 20200714
  Serious: Yes (Hospitalization, Other)
  Sender: FDA-Public Use
  Company Number: US-B.I. PHARMACEUTICALS,INC./RIDGEFIELD-2020-BI-000327

PATIENT
  Age: 83 Year
  Sex: Male

DRUGS (1)
  1. OFEV [Suspect]
     Active Substance: NINTEDANIB
     Indication: IDIOPATHIC PULMONARY FIBROSIS
     Route: 048
     Dates: start: 20191231

REACTIONS (14)
  - Nausea [Unknown]
  - Gastric haemorrhage [Unknown]
  - International normalised ratio increased [Unknown]
  - Frequent bowel movements [Unknown]
  - Gastric disorder [Unknown]
  - Haematochezia [Unknown]
  - Haemorrhage [Unknown]
  - Epistaxis [Unknown]
  - Malaise [Unknown]
  - Dyspnoea [Unknown]
  - Skin discolouration [Unknown]
  - Anaemia [Recovered/Resolved]
  - Faeces discoloured [Unknown]
  - Diarrhoea [Unknown]

NARRATIVE: CASE EVENT DATE: 20200501
